FAERS Safety Report 8461954-X (Version None)
Quarter: 2012Q2

REPORT INFORMATION
  Report Type: 
  Country: None (occurrence: None)
  Receive Date: 20120625
  Receipt Date: 20120614
  Transmission Date: 20120825
  Serious: Yes (Other)
  Sender: FDA-Public Use
  Company Number: CN-ASTELLAS-2012JP005500

PATIENT
  Age: 58 Year
  Sex: Male

DRUGS (5)
  1. TACROLIMUS [Suspect]
     Indication: TRANSPLANT REJECTION
  2. MYCOPHENOLATE MOFETIL [Concomitant]
     Indication: IMMUNOSUPPRESSANT DRUG THERAPY
     Dosage: 2000 MG, BID
     Route: 065
  3. PREDNISONE TAB [Concomitant]
     Indication: IMMUNOSUPPRESSANT DRUG THERAPY
     Dosage: 2.5 MG, QOD
     Route: 065
  4. ACE INHIBITORS [Concomitant]
     Indication: HYPERTENSION
     Route: 065
  5. TACROLIMUS [Suspect]
     Indication: HEART TRANSPLANT
     Route: 065

REACTIONS (1)
  - HYPERTROPHIC CARDIOMYOPATHY [None]
